FAERS Safety Report 6212963-2 (Version None)
Quarter: 2009Q2

REPORT INFORMATION
  Report Type: 
  Country: None (occurrence: None)
  Receive Date: 20090601
  Receipt Date: 20090519
  Transmission Date: 20091009
  Serious: Yes (Disabling)
  Sender: FDA-Public Use
  Company Number: 2009AL003463

PATIENT
  Sex: Male

DRUGS (1)
  1. METOCLOPRAMIDE  USP [Suspect]
     Indication: DRUG USE FOR UNKNOWN INDICATION
     Dosage: PO
     Route: 048

REACTIONS (9)
  - ANXIETY [None]
  - DYSKINESIA [None]
  - ECONOMIC PROBLEM [None]
  - EMOTIONAL DISTRESS [None]
  - EXTRAPYRAMIDAL DISORDER [None]
  - INJURY [None]
  - NERVOUS SYSTEM DISORDER [None]
  - PAIN [None]
  - PHYSICAL DISABILITY [None]
